FAERS Safety Report 6380668-3 (Version None)
Quarter: 2009Q3

REPORT INFORMATION
  Report Type: 
  Country: None (occurrence: None)
  Receive Date: 20090924
  Receipt Date: 20090401
  Transmission Date: 20100115
  Serious: Yes (Hospitalization, Other)
  Sender: FDA-Public Use
  Company Number: ADE# 09-003DPR

PATIENT
  Sex: Female
  Weight: 84.369 kg

DRUGS (8)
  1. DIGOXIN [Suspect]
     Indication: ARRHYTHMIA
     Dosage: ONE TABLET DAILY
  2. POTASSIUM CHLORIDE [Concomitant]
  3. FUROSEMIDE [Concomitant]
  4. FOLIC ACID [Concomitant]
  5. MELOXICAM [Concomitant]
  6. CAPTOPRIL [Concomitant]
  7. LEVOXYL [Concomitant]
  8. ASPIRIN [Concomitant]

REACTIONS (3)
  - CHEST DISCOMFORT [None]
  - DIZZINESS [None]
  - HEART RATE INCREASED [None]
